FAERS Safety Report 9143321 (Version 1)
Quarter: 2013Q1

REPORT INFORMATION
  Report Type: Spontaneous
  Country: US (occurrence: US)
  Receive Date: 20130306
  Receipt Date: 20130306
  Transmission Date: 20140127
  Serious: No
  Sender: FDA-Public Use
  Company Number: US-ENDO PHARMACEUTICALS INC.-OPER20120689

PATIENT
  Age: 47 Year
  Sex: Male

DRUGS (6)
  1. OPANA ER [Suspect]
     Indication: INTERVERTEBRAL DISC DEGENERATION
     Dosage: UNK
     Route: 048
     Dates: start: 201111, end: 201204
  2. OPANA ER [Suspect]
     Indication: ARTHRITIS
  3. OPANA ER [Suspect]
     Indication: NERVE INJURY
  4. LISINOPRIL TABLETS [Concomitant]
     Indication: BLOOD PRESSURE
  5. METFORMIN [Concomitant]
     Indication: HYPERGLYCAEMIA
  6. FAMOTIDINE [Concomitant]
     Indication: GASTRIC DISORDER

REACTIONS (3)
  - Hyperglycaemia [Not Recovered/Not Resolved]
  - Abdominal discomfort [Unknown]
  - Constipation [Unknown]
